FAERS Safety Report 5829581-8 (Version None)
Quarter: 2008Q3

REPORT INFORMATION
  Report Type: 
  Country: None (occurrence: None)
  Receive Date: 20080729
  Receipt Date: 20080723
  Transmission Date: 20090109
  Serious: Yes (Other)
  Sender: FDA-Public Use
  Company Number: 2008SP010519

PATIENT
  Age: 45 Year
  Sex: Male

DRUGS (4)
  1. PEG-INTRON [Suspect]
     Indication: HEPATITIS C
     Dosage: 120 MCG;SC
     Route: 058
     Dates: start: 20080416, end: 20080430
  2. RIBAVIRIN [Suspect]
     Indication: HEPATITIS C
     Dosage: 600 MG;BID;PO
     Route: 048
     Dates: start: 20080416, end: 20080430
  3. BENICAR [Concomitant]
  4. NIFEDIPINE [Concomitant]

REACTIONS (5)
  - DEHYDRATION [None]
  - INFLUENZA LIKE ILLNESS [None]
  - LOSS OF EMPLOYMENT [None]
  - MALAISE [None]
  - PAIN [None]
